FAERS Safety Report 10022475 (Version 2)
Quarter: 2014Q2

REPORT INFORMATION
  Report Type: Spontaneous
  Country: US (occurrence: US)
  Receive Date: 20140319
  Receipt Date: 20140404
  Transmission Date: 20141212
  Serious: Yes (Death)
  Sender: FDA-Public Use
  Company Number: US-ACTELION-A-NJ2014-96011

PATIENT
  Age: 72 Year
  Sex: Male

DRUGS (1)
  1. OPSUMIT [Suspect]
     Indication: PULMONARY ARTERIAL HYPERTENSION
     Dosage: UNK, QD
     Route: 048
     Dates: start: 20140306, end: 20140306

REACTIONS (1)
  - Death [Fatal]
